FAERS Safety Report 4382822-9 (Version None)
Quarter: 2004Q2

REPORT INFORMATION
  Report Type: 
  Country: None (occurrence: None)
  Receive Date: 20040603
  Receipt Date: 20040216
  Transmission Date: 20050107
  Serious: Yes (Hospitalization)
  Sender: FDA-Public Use
  Company Number: 200411187US

PATIENT
  Age: 66 Year
  Sex: Male

DRUGS (7)
  1. ENOXAPARIN SODIUM [Suspect]
     Indication: PROPHYLAXIS
     Dosage: 30 MG Q12H
     Dates: start: 20031030, end: 20031111
  2. ACETYLSALICYLIC ACID SRT [Concomitant]
  3. VITAMIN B6 [Concomitant]
  4. FOLIC ACID [Concomitant]
  5. DOCUSATE SODIUM (COLACE) [Concomitant]
  6. METOPROLOL TARTRATE (LOPRESSOR) [Concomitant]
  7. SENOKOT [Concomitant]

REACTIONS (3)
  - COMA [None]
  - HAEMORRHAGE INTRACRANIAL [None]
  - THROMBOSIS [None]
